FAERS Safety Report 7683754-0 (Version None)
Quarter: 2011Q3

REPORT INFORMATION
  Report Type: 
  Country: None (occurrence: None)
  Receive Date: 20110815
  Receipt Date: 20110809
  Transmission Date: 20111222
  Serious: Yes (Other)
  Sender: FDA-Public Use
  Company Number: CHPA2011US10623

PATIENT
  Sex: Female

DRUGS (1)
  1. 4 WAY MENTHOLATED NASAL SPRAY [Suspect]
     Indication: SINUS CONGESTION
     Dosage: UNK, BID
     Route: 045
     Dates: start: 20000101

REACTIONS (2)
  - DRUG DEPENDENCE [None]
  - INCORRECT DRUG ADMINISTRATION DURATION [None]
